FAERS Safety Report 6019043-X (Version None)
Quarter: 2008Q4

REPORT INFORMATION
  Report Type: 
  Country: None (occurrence: None)
  Receive Date: 20081224
  Receipt Date: 20081216
  Transmission Date: 20090506
  Serious: Yes (Hospitalization)
  Sender: FDA-Public Use
  Company Number: US-AVENTIS-200817699US

PATIENT
  Age: 82 Year
  Sex: Male
  Weight: 77.27 kg

DRUGS (7)
  1. LANTUS [Suspect]
     Route: 058
     Dates: start: 20070801, end: 20080531
  2. LANTUS [Suspect]
     Dosage: DOSE: UNK
     Route: 058
     Dates: start: 20081024
  3. OPTICLIK (INSULIN INJECTION PEN) [Suspect]
     Dates: start: 20081024
  4. OPTICLIK (INSULIN INJECTION PEN) [Suspect]
     Dates: start: 20080301, end: 20080531
  5. ZOCOR [Concomitant]
     Dosage: DOSE: UNK
  6. PREDNISONE [Concomitant]
     Dosage: DOSE: UNK
  7. PRANDIN                            /01393601/ [Concomitant]
     Dosage: DOSE: UNK

REACTIONS (1)
  - PNEUMONIA [None]
